FAERS Safety Report 10336652 (Version 3)
Quarter: 2014Q4

REPORT INFORMATION
  Report Type: Report from Study
  Country: IN (occurrence: IN)
  Receive Date: 20140723
  Receipt Date: 20141014
  Transmission Date: 20150528
  Serious: Yes (Death, Hospitalization)
  Sender: FDA-Public Use
  Company Number: PHHY2014IN089916

PATIENT
  Age: 43 Year
  Sex: Male

DRUGS (3)
  1. SIMULECT [Suspect]
     Active Substance: BASILIXIMAB
     Dosage: 20 MG, DAILY
     Route: 042
     Dates: start: 20140702, end: 20140702
  2. SIMULECT [Suspect]
     Active Substance: BASILIXIMAB
     Indication: RENAL TRANSPLANT
     Dosage: 20 MG, DAILY
     Route: 042
     Dates: start: 20140628
  3. PROGRAF [Concomitant]
     Active Substance: TACROLIMUS\TACROLIMUS ANHYDROUS
     Indication: RENAL TRANSPLANT
     Dosage: 9 MG, BID
     Route: 048
     Dates: start: 20140628

REACTIONS (3)
  - Dyspnoea [Fatal]
  - Kidney transplant rejection [Recovering/Resolving]
  - IgA nephropathy [Recovering/Resolving]

NARRATIVE: CASE EVENT DATE: 20140701
